FAERS Safety Report 6099834-X (Version None)
Quarter: 2009Q1

REPORT INFORMATION
  Report Type: 
  Country: None (occurrence: None)
  Receive Date: 20090303
  Receipt Date: 20090223
  Transmission Date: 20090719
  Serious: Yes (Other)
  Sender: FDA-Public Use
  Company Number: PHEH2009US01978

PATIENT
  Sex: Female

DRUGS (1)
  1. RECLAST [Suspect]

REACTIONS (5)
  - DEPRESSION [None]
  - EMOTIONAL DISORDER [None]
  - HEADACHE [None]
  - MALAISE [None]
  - PAIN [None]
